FAERS Safety Report 9158408 (Version 2)
Quarter: 2013Q1

REPORT INFORMATION
  Report Type: Spontaneous
  Country: JP (occurrence: None)
  Receive Date: 20130213
  Receipt Date: 20130220
  Transmission Date: 20140127
  Serious: Yes (Hospitalization)
  Sender: FDA-Public Use
  Company Number: TCI2013A00277

PATIENT
  Age: 90 Year
  Sex: Female

DRUGS (5)
  1. LIOVEL [Suspect]
     Indication: DIABETES MELLITUS
     Dosage: 1 TAB. (1 TAB., 1 IN 1 D) PER ORAL
     Route: 048
     Dates: start: 20110917, end: 20121010
  2. TAKEPRON (LANSOPRAZOLE) [Concomitant]
  3. CIBACEN [Concomitant]
  4. CRESTOR [Concomitant]
  5. KRACIE HACHIMIKUO GAN(HERBAL EXTRACT NOS) [Concomitant]

REACTIONS (7)
  - Fall [None]
  - Femur fracture [None]
  - Dementia [None]
  - Somnolence [None]
  - Altered state of consciousness [None]
  - Refusal of treatment by relative [None]
  - Hyperglycaemia [None]
